FAERS Safety Report 22238373 (Version 1)
Quarter: 2023Q2

REPORT INFORMATION
  Report Type: Spontaneous
  Country: US (occurrence: US)
  Receive Date: 20230421
  Receipt Date: 20230421
  Transmission Date: 20230722
  Serious: Yes (Hospitalization)
  Sender: FDA-Public Use
  Company Number: None

PATIENT
  Age: 51 Year
  Sex: Male

DRUGS (7)
  1. ALBUTEROL SULFATE [Suspect]
     Active Substance: ALBUTEROL SULFATE
     Indication: Asthma
     Dosage: UNKNOWN
  2. EPINEPHRINE [Suspect]
     Active Substance: EPINEPHRINE
     Indication: Bronchospasm
     Dosage: UNKNOWN
     Route: 030
  3. KETAMINE [Suspect]
     Active Substance: KETAMINE
     Indication: Bronchospasm
     Dosage: UNKNOWN
  4. MONTELUKAST [Suspect]
     Active Substance: MONTELUKAST SODIUM
     Indication: Asthma
     Dosage: UNKNOWN
  5. PREDNISONE [Suspect]
     Active Substance: PREDNISONE
     Indication: Asthma
     Dosage: UNKNOWN
  6. RACEPINEPHRINE [Suspect]
     Active Substance: RACEPINEPHRINE
     Indication: Bronchospasm
     Dosage: UNKNOWN
  7. TIOTROPIUM BROMIDE [Suspect]
     Active Substance: TIOTROPIUM BROMIDE
     Indication: Asthma
     Dosage: UNKNOWN

REACTIONS (1)
  - Drug ineffective [Unknown]
